FAERS Safety Report 15403947 (Version 2)
Quarter: 2018Q4

REPORT INFORMATION
  Report Type: Spontaneous
  Country: US (occurrence: US)
  Receive Date: 20180919
  Receipt Date: 20181220
  Transmission Date: 20190204
  Serious: No
  Sender: FDA-Public Use
  Company Number: US-AVADEL SPECIALTY PHARMACEUTICALS, LLC-2018AVA00319

PATIENT
  Age: 89 Year
  Sex: Male
  Weight: 68.03 kg

DRUGS (5)
  1. ALFUZOSIN HCL ER [Concomitant]
     Active Substance: ALFUZOSIN HYDROCHLORIDE
  2. NOCTIVA [Suspect]
     Active Substance: DESMOPRESSIN ACETATE
     Indication: NOCTURIA
     Dosage: 1.66 ?G, ONCE
     Route: 045
     Dates: start: 20180716, end: 20180716
  3. TIMOLOL MALEATE. [Concomitant]
     Active Substance: TIMOLOL MALEATE
  4. PREDNISONE ACETATE [Concomitant]
     Active Substance: PREDNISONE ACETATE
  5. DONEPEZIL. [Concomitant]
     Active Substance: DONEPEZIL
     Dosage: 1 TABLETS, 1X/DAY AT NIGHT

REACTIONS (3)
  - Hypersensitivity [Recovered/Resolved]
  - Sneezing [Recovered/Resolved]
  - Rhinalgia [Recovered/Resolved]

NARRATIVE: CASE EVENT DATE: 20180716
